FAERS Safety Report 15819656 (Version 1)
Quarter: 2019Q1

REPORT INFORMATION
  Report Type: Spontaneous
  Country: SE (occurrence: SE)
  Receive Date: 20190114
  Receipt Date: 20190114
  Transmission Date: 20190417
  Serious: Yes (Life-Threatening, Disabling, Congenital Anomaly)
  Sender: FDA-Public Use
  Company Number: SE-BAUSCH-BL-2019-000779

PATIENT

DRUGS (2)
  1. DEXAMETHASONE. [Suspect]
     Active Substance: DEXAMETHASONE
     Indication: PRODUCT USED FOR UNKNOWN INDICATION
     Route: 064
     Dates: start: 20180515, end: 20180903
  2. FURADANTIN [Concomitant]
     Active Substance: NITROFURANTOIN
     Indication: PRODUCT USED FOR UNKNOWN INDICATION
     Route: 064
     Dates: start: 20180515, end: 20180903

REACTIONS (6)
  - Foetal exposure during pregnancy [Recovered/Resolved]
  - Talipes [Not Recovered/Not Resolved]
  - Cleft palate [Not Recovered/Not Resolved]
  - Foetal growth restriction [Not Recovered/Not Resolved]
  - Hypospadias [Not Recovered/Not Resolved]
  - Umbilical artery hypoplasia [Not Recovered/Not Resolved]

NARRATIVE: CASE EVENT DATE: 2018
